FAERS Safety Report 8832231 (Version 1)
Quarter: 2012Q4

REPORT INFORMATION
  Report Type: 
  Country: JP (occurrence: US)
  Receive Date: 20121009
  Receipt Date: 20121009
  Transmission Date: 20130627
  Serious: Yes (Other)
  Sender: FDA-Public Use
  Company Number: US-BRISTOL-MYERS SQUIBB COMPANY-17014663

PATIENT
  Age: 54 Year
  Sex: Female

DRUGS (10)
  1. STAVUDINE [Suspect]
     Indication: HIV INFECTION
  2. DIDANOSINE [Suspect]
     Indication: HIV INFECTION
  3. HYDROXYUREA [Suspect]
     Indication: HIV INFECTION
  4. NELFINAVIR [Suspect]
     Indication: HIV INFECTION
  5. SAQUINAVIR [Suspect]
     Indication: HIV INFECTION
  6. ABACAVIR [Suspect]
     Indication: HIV INFECTION
  7. NEVIRAPINE [Suspect]
     Indication: HIV INFECTION
  8. ZIDOVUDINE [Suspect]
     Indication: HIV INFECTION
  9. LAMIVUDINE [Suspect]
     Indication: HIV INFECTION
  10. INDINAVIR [Suspect]
     Indication: HIV INFECTION

REACTIONS (3)
  - Viraemia [Unknown]
  - Lipodystrophy acquired [Unknown]
  - Neuropathy peripheral [Unknown]
